FAERS Safety Report 8943294 (Version 2)
Quarter: 2012Q4

REPORT INFORMATION
  Report Type: Spontaneous
  Country: CN (occurrence: None)
  Receive Date: 20121123
  Receipt Date: 20121203
  Transmission Date: 20130627
  Serious: Yes (Death, Life-Threatening)
  Sender: FDA-Public Use
  Company Number: DSA_61040_2012

PATIENT
  Age: 62 Year
  Sex: Female

DRUGS (10)
  1. 5-FU [Suspect]
     Indication: COLON CANCER METASTATIC
     Dosage: 736 mg; Every cycle Intravenous bolus)
     Route: 040
     Dates: start: 20121102, end: 20121102
  2. 5-FU [Suspect]
     Indication: COLON CANCER METASTATIC
     Dosage: Every cycle (not otherwise specified)
     Route: 042
     Dates: start: 20121102, end: 20121102
  3. PLACEBO [Suspect]
     Indication: COLON CANCER METASTATIC
     Dosage: 288 mg, every other week, (not otherwise specified)
     Route: 042
     Dates: start: 20121112, end: 20121102
  4. IRINOTECAN [Suspect]
     Indication: COLON CANCER METASTATIC
     Dosage: 331 mg; Every cycle (not otherwise specified)
     Route: 042
     Dates: start: 20121102, end: 20121102
  5. LEUCOVORIN [Suspect]
     Indication: COLON CANCER METASTATIC
     Dosage: 736, every cycle  (not otherwise specified)
     Route: 042
     Dates: start: 20121102, end: 20121102
  6. AMLODIPINE [Concomitant]
  7. SMECTITE [Concomitant]
  8. TROPISETRON [Concomitant]
  9. OXALIPLATIN [Concomitant]
  10. XELODA [Concomitant]

REACTIONS (10)
  - Loss of consciousness [None]
  - Nausea [None]
  - Vomiting [None]
  - Abdominal pain [None]
  - Cough [None]
  - Breath holding [None]
  - Pupils unequal [None]
  - Rhonchi [None]
  - Metabolic acidosis [None]
  - Blood pressure decreased [None]
